FAERS Safety Report 8332666-8 (Version None)
Quarter: 2012Q2

REPORT INFORMATION
  Report Type: 
  Country: None (occurrence: None)
  Receive Date: 20120503
  Receipt Date: 20120421
  Transmission Date: 20120825
  Serious: Yes (Hospitalization)
  Sender: FDA-Public Use
  Company Number: CA-JNJFOC-20120410288

PATIENT
  Sex: Female
  Weight: 56.25 kg

DRUGS (4)
  1. DIANE 35 [Concomitant]
     Indication: ACNE
     Route: 048
  2. IMODIUM [Concomitant]
     Route: 065
  3. REMICADE [Suspect]
     Indication: POUCHITIS
     Dosage: ONCE IN 6 TO 8 WEEKS
     Route: 042
     Dates: start: 20080101
  4. ALL OTHER THERAPEUTICS [Concomitant]
     Indication: ACNE
     Route: 065

REACTIONS (6)
  - DEHYDRATION [None]
  - ABDOMINAL PAIN [None]
  - VOMITING [None]
  - DIARRHOEA [None]
  - PYREXIA [None]
  - ASTHENIA [None]
